FAERS Safety Report 7653719-3 (Version None)
Quarter: 2011Q3

REPORT INFORMATION
  Report Type: 
  Country: None (occurrence: None)
  Receive Date: 20110803
  Receipt Date: 20110714
  Transmission Date: 20111222
  Serious: Yes (Hospitalization)
  Sender: FDA-Public Use
  Company Number: US-GLAXOSMITHKLINE-A0869589A

PATIENT
  Age: 55 Year
  Sex: Male
  Weight: 96.4 kg

DRUGS (8)
  1. AVANDIA [Suspect]
     Indication: DIABETES MELLITUS
     Dosage: 4MG PER DAY
     Dates: start: 20000301
  2. TRICOR [Concomitant]
  3. ATENOLOL [Concomitant]
  4. INSULIN [Concomitant]
     Dates: start: 20030101
  5. COZAAR [Concomitant]
  6. CARBIDOPA [Concomitant]
  7. SIMVASTATIN [Concomitant]
  8. LEVODOPA [Concomitant]

REACTIONS (3)
  - CEREBROVASCULAR ACCIDENT [None]
  - MYOCARDIAL INFARCTION [None]
  - TRANSIENT ISCHAEMIC ATTACK [None]
